FAERS Safety Report 17955187 (Version 1)
Quarter: 2020Q2

REPORT INFORMATION
  Report Type: Spontaneous
  Country: CA (occurrence: CA)
  Receive Date: 20200629
  Receipt Date: 20200629
  Transmission Date: 20200714
  Serious: Yes (Other)
  Sender: FDA-Public Use
  Company Number: CA-B.I. PHARMACEUTICALS,INC./RIDGEFIELD-2020-BI-031249

PATIENT
  Age: 5 Year
  Sex: Male
  Weight: 16.2 kg

DRUGS (2)
  1. CATAPRESSAN [Suspect]
     Active Substance: CLONIDINE
     Indication: BLOOD GROWTH HORMONE ABNORMAL
     Dosage: 100UG/M2
     Route: 048
  2. L ARGININE [ARGININE] [Suspect]
     Active Substance: ARGININE
     Indication: BLOOD GROWTH HORMONE ABNORMAL
     Dosage: 0.5 GRAMS/KG
     Route: 042

REACTIONS (3)
  - Off label use [Unknown]
  - Myalgia [Recovered/Resolved]
  - Haematuria [Recovered/Resolved]
